FAERS Safety Report 13865995 (Version 1)
Quarter: 2017Q3

REPORT INFORMATION
  Report Type: Spontaneous
  Country: US (occurrence: US)
  Receive Date: 20170814
  Receipt Date: 20170814
  Transmission Date: 20171127
  Serious: No
  Sender: FDA-Public Use
  Company Number: US-MALLINCKRODT-T201700875

PATIENT
  Age: 69 Year
  Sex: Female

DRUGS (6)
  1. MORPHINE SULFATE. [Suspect]
     Active Substance: MORPHINE SULFATE
     Indication: PRODUCT USED FOR UNKNOWN INDICATION
     Dosage: 0.25 ML (5 MG) Q4H
     Route: 048
     Dates: start: 20170227
  2. MORPHINE SULFATE. [Suspect]
     Active Substance: MORPHINE SULFATE
     Dosage: 0.25 ML (5 MG), Q2H, PRN
     Route: 048
     Dates: start: 20170227
  3. LORAZEPAM. [Concomitant]
     Active Substance: LORAZEPAM
     Route: 048
  4. TYLENOL [Concomitant]
     Active Substance: ACETAMINOPHEN
     Route: 054
  5. BISACODYL. [Concomitant]
     Active Substance: BISACODYL
     Route: 054
  6. LEVSIN SL [Concomitant]
     Active Substance: HYOSCYAMINE SULFATE
     Route: 060

REACTIONS (1)
  - Product storage error [Unknown]

NARRATIVE: CASE EVENT DATE: 20170301
